FAERS Safety Report 5470005-0 (Version None)
Quarter: 2007Q3

REPORT INFORMATION
  Report Type: 
  Country: None (occurrence: None)
  Receive Date: 20070927
  Receipt Date: 20070918
  Transmission Date: 20080115
  Serious: Yes (Other)
  Sender: FDA-Public Use
  Company Number: US-PFIZER INC-2007050412

PATIENT
  Sex: Female
  Weight: 73 kg

DRUGS (3)
  1. SUTENT [Suspect]
     Indication: HEPATIC NEOPLASM MALIGNANT
     Route: 048
  2. SUTENT [Suspect]
  3. PROVIGIL [Concomitant]
     Dosage: FREQ:INTERMITTENT: 100MG EVERY OTHER DAY

REACTIONS (1)
  - SWEAT GLAND INFECTION [None]
